FAERS Safety Report 4708563-3 (Version None)
Quarter: 2005Q3

REPORT INFORMATION
  Report Type: 
  Country: None (occurrence: None)
  Receive Date: 20050706
  Receipt Date: 20050622
  Transmission Date: 20060218
  Serious: Yes (Other)
  Sender: FDA-Public Use
  Company Number: US-2005-007017

PATIENT
  Age: 60 Year
  Sex: Female
  Weight: 64.9 kg

DRUGS (17)
  1. BETASERON [Suspect]
     Indication: RELAPSING-REMITTING MULTIPLE SCLEROSIS
     Dosage: 9 MIU, EVERY 2D, SUBCUTANEOUS
     Route: 058
     Dates: start: 19961201, end: 20030401
  2. PENTASA [Concomitant]
  3. OXYBUTYNIN CHLORIDE [Concomitant]
  4. NITROTAB [Concomitant]
  5. ZOCOR [Concomitant]
  6. ISOSORBIDE (ISOSORBIDE) [Concomitant]
  7. METOPROLOL TARTRATE [Concomitant]
  8. COZAAR [Concomitant]
  9. ASPIRIN [Concomitant]
  10. OMEGA-3 MARINE TRIGLYCERIDES (OMEGA-3 MARINE TRIGLYCERIDES) [Concomitant]
  11. MULTIVITAMINS (PANTHENOL, RETINOL) [Concomitant]
  12. CRANBERRY [Concomitant]
  13. MAGNESIUM (MAGNESIUM) [Concomitant]
  14. VIACTIV /USA/ (CALCIUM) [Concomitant]
  15. VITAMIN B6 [Concomitant]
  16. VITAMIN E [Concomitant]
  17. SEAVEGG [Concomitant]

REACTIONS (6)
  - BREAST CANCER IN SITU [None]
  - BREAST CANCER METASTATIC [None]
  - BREAST CYST [None]
  - BREAST MICROCALCIFICATION [None]
  - OESTROGEN RECEPTOR ASSAY POSITIVE [None]
  - PROGESTERONE RECEPTOR ASSAY POSITIVE [None]
